FAERS Safety Report 18278247 (Version 1)
Quarter: 2020Q3

REPORT INFORMATION
  Report Type: Spontaneous
  Country: GB (occurrence: GB)
  Receive Date: 20200917
  Receipt Date: 20200917
  Transmission Date: 20201103
  Serious: Yes (Disabling)
  Sender: FDA-Public Use
  Company Number: GB-MYLANLABS-2020M1078416

PATIENT
  Age: 83 Year
  Sex: Female
  Weight: 60.77 kg

DRUGS (2)
  1. MIRTAZAPINE. [Suspect]
     Active Substance: MIRTAZAPINE
     Dosage: 3 MILLIGRAM
     Route: 048
     Dates: end: 20200702
  2. MIRTAZAPINE. [Suspect]
     Active Substance: MIRTAZAPINE
     Indication: DEPRESSION
     Dosage: 15 MILLIGRAM (15MG BUT REDUCED TO 3MG)
     Route: 048
     Dates: start: 20200208

REACTIONS (4)
  - Fibromyalgia [Recovering/Resolving]
  - Pain in extremity [Recovering/Resolving]
  - Chronic fatigue syndrome [Recovering/Resolving]
  - Back pain [Recovering/Resolving]

NARRATIVE: CASE EVENT DATE: 202004
